FAERS Safety Report 7074840-7 (Version None)
Quarter: 2010Q4

REPORT INFORMATION
  Report Type: 
  Country: None (occurrence: None)
  Receive Date: 20101029
  Receipt Date: 20020703
  Transmission Date: 20110411
  Serious: Yes (Death)
  Sender: FDA-Public Use
  Company Number: NZ-GENENTECH-308702

PATIENT

DRUGS (1)
  1. PULMOZYME [Suspect]
     Dosage: UNK
     Route: 065

REACTIONS (1)
  - DEATH [None]
